FAERS Safety Report 15114832 (Version 1)
Quarter: 2018Q3

REPORT INFORMATION
  Report Type: Report from Study
  Country: IT (occurrence: IT)
  Receive Date: 20180706
  Receipt Date: 20180706
  Transmission Date: 20181010
  Serious: Yes (Other)
  Sender: FDA-Public Use
  Company Number: IT-TEVA-2018-IT-920655

PATIENT
  Age: 85 Year
  Sex: Male

DRUGS (15)
  1. BISOPROLOLO SANDOZ 1,25 MG COMPRESSE RIVESTITE CON FILM [Concomitant]
  2. XATRAL 10 MG COMPRESSE A RILASCIO PROLUNGATO [Concomitant]
     Route: 065
  3. QUETIAPINA EG 25 MG COMPRESSE RIVESTITE CON FILM [Suspect]
     Active Substance: QUETIAPINE FUMARATE
     Indication: AGITATION
     Dosage: 25 MILLIGRAM DAILY;
     Route: 065
  4. AVODART [Concomitant]
     Active Substance: DUTASTERIDE
  5. EBIXA 20 MG FILM?COATED TABLETS [Concomitant]
  6. SIMVASTATIN. [Concomitant]
     Active Substance: SIMVASTATIN
  7. LANOXIN [Concomitant]
     Active Substance: DIGOXIN
  8. LASITONE 25 MG + 37 MG CAPSULE RIGIDE [Concomitant]
  9. LORAZEPAM DOROM 2,5 MG COMPRESSE [Suspect]
     Active Substance: LORAZEPAM
     Indication: INSOMNIA
     Route: 065
  10. XARELTO 15 MG FILM?COATED TABLETS [Concomitant]
     Route: 065
  11. EUTIROX 25 MICROGRAMMI COMPRESSE [Concomitant]
     Active Substance: LEVOTHYROXINE SODIUM
  12. BISOPROLOLO SANDOZ 1,25 MG COMPRESSE RIVESTITE CON FILM [Concomitant]
     Route: 065
  13. INTRAFER 50 MG/ML GOCCE ORALI, SOLUZIONE [Concomitant]
  14. QUETIAPINA DOC [Suspect]
     Active Substance: QUETIAPINE
     Indication: AGITATION
     Route: 065
  15. PANTOPRAZOLO SANDOZ 40 MG COMPRESSE GASTRORESISTENTI [Concomitant]

REACTIONS (1)
  - Sopor [Recovered/Resolved]

NARRATIVE: CASE EVENT DATE: 20180404
